FAERS Safety Report 17286566 (Version 1)
Quarter: 2020Q1

REPORT INFORMATION
  Report Type: Spontaneous
  Country: US (occurrence: US)
  Receive Date: 20191230
  Receipt Date: 20191230
  Transmission Date: 20200409
  Serious: Yes (Hospitalization)
  Sender: FDA-Public Use
  Company Number: None

PATIENT
  Age: 48 Year
  Sex: Female

DRUGS (14)
  1. LUPRON [Concomitant]
     Active Substance: LEUPROLIDE ACETATE
  2. MELATONIN [Concomitant]
     Active Substance: MELATONIN
  3. XGEVA [Concomitant]
     Active Substance: DENOSUMAB
  4. LORAZEPARN [Concomitant]
  5. IBRANCE [Suspect]
     Active Substance: PALBOCICLIB
     Indication: BREAST CANCER FEMALE
     Route: 048
  6. MILK [Concomitant]
     Active Substance: COW MILK
  7. THISTLE [Concomitant]
  8. VITAMIN E [Concomitant]
     Active Substance: .ALPHA.-TOCOPHEROL
  9. OXYCODONE [Concomitant]
     Active Substance: OXYCODONE
  10. EFFEXOR [Concomitant]
     Active Substance: VENLAFAXINE HYDROCHLORIDE
  11. TAMOXIFEN [Concomitant]
     Active Substance: TAMOXIFEN
  12. VITAMIN B12 [Concomitant]
     Active Substance: CYANOCOBALAMIN
  13. GARLIC OIL [Concomitant]
     Active Substance: GARLIC OIL
  14. CALCIUM+D3 [Concomitant]
     Active Substance: CALCIUM\CHOLECALCIFEROL

REACTIONS (1)
  - Hospitalisation [None]
